FAERS Safety Report 9881832 (Version 2)
Quarter: 2014Q2

REPORT INFORMATION
  Report Type: Spontaneous
  Country: JP (occurrence: JP)
  Receive Date: 20140207
  Receipt Date: 20140620
  Transmission Date: 20141212
  Serious: Yes (Other)
  Sender: FDA-Public Use
  Company Number: JP-PFIZER INC-2014034744

PATIENT
  Sex: Male

DRUGS (4)
  1. SOLANAX [Suspect]
     Dosage: 1.2 MG, 2X/DAY
     Route: 048
  2. SOLANAX [Suspect]
     Dosage: 0.4 MG, 1X/DAY
     Route: 048
  3. SOLANAX [Suspect]
     Dosage: REDUCED BY HALF
     Route: 048
  4. DEPAS [Concomitant]
     Dosage: UNK

REACTIONS (5)
  - Drug dependence [Unknown]
  - Bipolar I disorder [Unknown]
  - Pain in extremity [Unknown]
  - Therapeutic response decreased [Unknown]
  - Drug withdrawal syndrome [Unknown]
